FAERS Safety Report 4377155-0 (Version None)
Quarter: 2004Q2

REPORT INFORMATION
  Report Type: 
  Country: None (occurrence: None)
  Receive Date: 20040614
  Receipt Date: 20040614
  Transmission Date: 20050107
  Serious: No
  Sender: FDA-Public Use
  Company Number: None

PATIENT
  Age: 45 Year
  Sex: Male
  Weight: 72.8 kg

DRUGS (1)
  1. DURAGESIC [Suspect]
     Indication: PAIN
     Dosage: 25 MICROG EVERY 3 DA TRANSDERMAL
     Route: 062
     Dates: start: 20040511, end: 20040513

REACTIONS (2)
  - ABNORMAL BEHAVIOUR [None]
  - DISORIENTATION [None]
